FAERS Safety Report 10688105 (Version 1)
Quarter: 2015Q1

REPORT INFORMATION
  Report Type: Report from Study
  Country: US (occurrence: US)
  Receive Date: 20150102
  Receipt Date: 20150102
  Transmission Date: 20150720
  Serious: Yes (Hospitalization, Other)
  Sender: FDA-Public Use
  Company Number: PHEH2014US025937

PATIENT
  Age: 61 Year
  Sex: Male

DRUGS (2)
  1. TASIGNA [Suspect]
     Active Substance: NILOTINIB
     Dosage: 200 MG, QD
     Route: 048
  2. TASIGNA [Suspect]
     Active Substance: NILOTINIB
     Indication: CHRONIC MYELOID LEUKAEMIA
     Dosage: 200 MG, QD
     Route: 048

REACTIONS (25)
  - Pneumonia [Unknown]
  - Fatigue [Unknown]
  - Anxiety [Unknown]
  - Graft versus host disease [Unknown]
  - Scleroderma [Unknown]
  - Memory impairment [Unknown]
  - Neck pain [Unknown]
  - Myocardial infarction [Unknown]
  - Adrenal insufficiency [Unknown]
  - Dizziness [Unknown]
  - Intervertebral disc degeneration [Unknown]
  - Urticaria [Unknown]
  - Pancreatitis [Unknown]
  - Visual impairment [Unknown]
  - Dyspnoea [Unknown]
  - Lung infiltration [Unknown]
  - Myalgia [Unknown]
  - Oedema peripheral [Unknown]
  - Depression [Unknown]
  - Disturbance in attention [Unknown]
  - Syncope [Unknown]
  - Arthralgia [Unknown]
  - Rash [Unknown]
  - Pain [Unknown]
  - Dyspnoea exertional [Unknown]

NARRATIVE: CASE EVENT DATE: 201104
